FAERS Safety Report 4332807-3 (Version None)
Quarter: 2004Q1

REPORT INFORMATION
  Report Type: 
  Country: None (occurrence: None)
  Receive Date: 20040330
  Receipt Date: 20040317
  Transmission Date: 20041129
  Serious: Yes (Hospitalization)
  Sender: FDA-Public Use
  Company Number: HQWYE150707JAN04

PATIENT
  Age: 57 Year
  Sex: Female

DRUGS (3)
  1. EFFEXOR [Suspect]
     Indication: ANXIETY
     Dosage: ^37.5 TO 75 MG DAILY^
     Route: 048
     Dates: start: 20030725, end: 20031130
  2. EFFEXOR [Suspect]
     Indication: DEPRESSION
     Dosage: ^37.5 TO 75 MG DAILY^
     Route: 048
     Dates: start: 20030725, end: 20031130
  3. XANAX [Concomitant]

REACTIONS (8)
  - BLOOD CORTISOL INCREASED [None]
  - CEREBROVASCULAR DISORDER [None]
  - GLOBAL AMNESIA [None]
  - GRAND MAL CONVULSION [None]
  - HYPONATRAEMIA [None]
  - INAPPROPRIATE ANTIDIURETIC HORMONE SECRETION [None]
  - METABOLIC ACIDOSIS [None]
  - SELF-INDUCED VOMITING [None]
